FAERS Safety Report 4314086-6 (Version None)
Quarter: 2004Q1

REPORT INFORMATION
  Report Type: 
  Country: None (occurrence: None)
  Receive Date: 20040305
  Receipt Date: 20040115
  Transmission Date: 20041129
  Serious: Yes (Life-Threatening, Hospitalization)
  Sender: FDA-Public Use
  Company Number: 2004UW00229

PATIENT
  Sex: 0

DRUGS (2)
  1. CRESTOR [Suspect]
     Dosage: 10 MG DAILY
  2. COUMADIN [Suspect]

REACTIONS (3)
  - CONTUSION [None]
  - DRUG TOXICITY [None]
  - INTERNATIONAL NORMALISED RATIO INCREASED [None]
